FAERS Safety Report 6051145-4 (Version None)
Quarter: 2009Q1

REPORT INFORMATION
  Report Type: 
  Country: None (occurrence: None)
  Receive Date: 20090121
  Receipt Date: 20090121
  Transmission Date: 20090719
  Serious: Yes (Life-Threatening, Hospitalization)
  Sender: FDA-Public Use
  Company Number: None

PATIENT
  Age: 28 Year
  Sex: Female
  Weight: 91.5 kg

DRUGS (2)
  1. YAZ [Suspect]
     Indication: ENDOMETRIOSIS
     Dosage: 1 TAB DAILY PO APPROX.5 MOS.
     Route: 048
  2. YAZ [Suspect]
     Indication: PREMENSTRUAL SYNDROME
     Dosage: 1 TAB DAILY PO APPROX.5 MOS.
     Route: 048

REACTIONS (2)
  - ILL-DEFINED DISORDER [None]
  - PULMONARY EMBOLISM [None]
